FAERS Safety Report 8600333 (Version 3)
Quarter: 2014Q1

REPORT INFORMATION
  Report Type: Spontaneous
  Country: US (occurrence: US)
  Receive Date: 20120606
  Receipt Date: 20140131
  Transmission Date: 20141002
  Serious: Yes (Hospitalization, Disabling, Other)
  Sender: FDA-Public Use
  Company Number: US-ASTRAZENECA-2012SE35430

PATIENT
  Age: 36 Year
  Sex: Female
  Weight: 81.6 kg

DRUGS (21)
  1. NEXIUM [Suspect]
     Indication: DYSPEPSIA
     Route: 048
     Dates: start: 20081002
  2. NEXIUM [Suspect]
     Indication: DYSPEPSIA
     Route: 048
     Dates: start: 20081002
  3. AMBIEN CR [Concomitant]
     Indication: SLEEP DISORDER
     Route: 048
     Dates: start: 20081022
  4. ESTRADIOL [Concomitant]
     Indication: HORMONE REPLACEMENT THERAPY
  5. ESTRADIOL [Concomitant]
     Indication: HORMONE REPLACEMENT THERAPY
     Dates: start: 201002
  6. INDERAL [Concomitant]
     Dates: start: 201002
  7. CYMBALTA [Concomitant]
     Indication: DEPRESSION
     Route: 048
     Dates: start: 20081105
  8. MYLANTA OTC [Concomitant]
     Indication: DYSPEPSIA
     Dates: start: 1994
  9. ZOLOFT [Concomitant]
     Indication: DEPRESSION
  10. LAMICTAL [Concomitant]
     Indication: DEPRESSION
  11. METOPROLOL [Concomitant]
     Indication: CARDIAC DISORDER
  12. METOPROLOL [Concomitant]
     Indication: ARRHYTHMIA
  13. TRAZADONE [Concomitant]
     Indication: SLEEP DISORDER
  14. FLEXERIL [Concomitant]
  15. MIDRIN [Concomitant]
  16. NEXIUM [Suspect]
     Indication: DYSPEPSIA
     Dosage: ONCE
     Route: 048
     Dates: start: 2005, end: 2011
  17. NEXIUM [Suspect]
     Indication: DYSPEPSIA
     Dosage: ONCE
     Route: 048
     Dates: start: 2005, end: 2011
  18. NEXIUM [Suspect]
     Indication: DYSPEPSIA
     Route: 048
     Dates: start: 200608, end: 2011
  19. NEXIUM [Suspect]
     Indication: DYSPEPSIA
     Route: 048
     Dates: start: 200608, end: 2011
  20. NEXIUM [Suspect]
     Indication: DYSPEPSIA
     Route: 048
     Dates: start: 200608
  21. NEXIUM [Suspect]
     Indication: DYSPEPSIA
     Route: 048
     Dates: start: 200608

REACTIONS (14)
  - Intervertebral disc disorder [Unknown]
  - Post laminectomy syndrome [Unknown]
  - Intervertebral disc degeneration [Unknown]
  - Back disorder [Unknown]
  - Intervertebral disc protrusion [Unknown]
  - Lumbar spinal stenosis [Unknown]
  - Abdominal pain [Unknown]
  - Depression [Unknown]
  - Osteoporosis [Unknown]
  - Multiple fractures [Unknown]
  - Bone disorder [Unknown]
  - Activities of daily living impaired [Unknown]
  - Osteopenia [Unknown]
  - Radiculitis lumbosacral [Unknown]
